FAERS Safety Report 8909727 (Version 1)
Quarter: 2012Q4

REPORT INFORMATION
  Report Type: 
  Country: FR (occurrence: FR)
  Receive Date: 20121115
  Receipt Date: 20121115
  Transmission Date: 20130627
  Serious: Yes (Death)
  Sender: FDA-Public Use
  Company Number: FR-009507513-1211FRA005459

PATIENT
  Sex: Female

DRUGS (12)
  1. SIMVASTATIN [Suspect]
     Dosage: 20 mg, qd
     Route: 048
     Dates: start: 200605, end: 201205
  2. TAHOR [Suspect]
     Indication: HYPERCHOLESTEROLAEMIA
     Dosage: 40 mg, qd
     Route: 048
     Dates: start: 20120510, end: 20120519
  3. TRANXENE [Concomitant]
     Dosage: UNK
  4. CACIT VITAMINE D3 [Concomitant]
     Dosage: UNK
  5. PERISTALTINE [Concomitant]
     Dosage: UNK
  6. PLAVIX [Concomitant]
     Dosage: UNK
  7. QUININE BENZOATE [Concomitant]
     Dosage: UNK
  8. DAFLON (DIOSMIN) [Concomitant]
     Dosage: UNK
  9. METFORMIN [Concomitant]
     Dosage: UNK
  10. LEVOTHYROX [Concomitant]
     Dosage: UNK
  11. STILNOX [Concomitant]
     Dosage: UNK
  12. CARBOSYMAG [Concomitant]
     Dosage: UNK

REACTIONS (1)
  - Interstitial lung disease [Fatal]
